FAERS Safety Report 4754839-3 (Version None)
Quarter: 2005Q3

REPORT INFORMATION
  Report Type: 
  Country: None (occurrence: None)
  Receive Date: 20050829
  Receipt Date: 20050818
  Transmission Date: 20060218
  Serious: Yes (Hospitalization)
  Sender: FDA-Public Use
  Company Number: JP-MERCK-0508USA03995

PATIENT
  Age: 65 Year
  Sex: Male

DRUGS (2)
  1. PEPCID RPD [Suspect]
     Indication: GASTRIC ULCER
     Route: 048
     Dates: start: 19990101, end: 20050620
  2. MUCOSTA [Concomitant]
     Route: 048
     Dates: end: 20050620

REACTIONS (4)
  - ASTHENIA [None]
  - DIFFICULTY IN WALKING [None]
  - MALAISE [None]
  - PYREXIA [None]
